FAERS Safety Report 23134703 (Version 3)
Quarter: 2023Q4

REPORT INFORMATION
  Report Type: Spontaneous
  Country: JP (occurrence: JP)
  Receive Date: 20231101
  Receipt Date: 20231211
  Transmission Date: 20240110
  Serious: Yes (Hospitalization, Other)
  Sender: FDA-Public Use
  Company Number: JP-BRISTOL-MYERS SQUIBB COMPANY-2023-125169

PATIENT
  Age: 83 Year
  Sex: Female
  Weight: 39 kg

DRUGS (1)
  1. ORENCIA [Suspect]
     Active Substance: ABATACEPT
     Indication: Rheumatoid arthritis
     Route: 041
     Dates: start: 202112, end: 202204

REACTIONS (2)
  - Drug ineffective [Unknown]
  - Fracture [Unknown]

NARRATIVE: CASE EVENT DATE: 20220401
